FAERS Safety Report 5113797-2 (Version None)
Quarter: 2006Q3

REPORT INFORMATION
  Report Type: 
  Country: None (occurrence: None)
  Receive Date: 20060920
  Receipt Date: 20060907
  Transmission Date: 20061208
  Serious: Yes (Other)
  Sender: FDA-Public Use
  Company Number: 2006088145

PATIENT
  Age: 43 Year
  Sex: Female
  Weight: 72 kg

DRUGS (2)
  1. ARTHROTEC [Suspect]
     Indication: TENDONITIS
     Dosage: 75 MG (75 MG, AS NECESSARY), ORAL
     Route: 048
     Dates: start: 20060629, end: 20060706
  2. LEVOTHYROXINE SODIUM [Concomitant]

REACTIONS (4)
  - IMPAIRED WORK ABILITY [None]
  - UTERINE LEIOMYOMA [None]
  - VAGINAL HAEMORRHAGE [None]
  - VAGINISMUS [None]
